FAERS Safety Report 17533368 (Version 1)
Quarter: 2020Q1

REPORT INFORMATION
  Report Type: Other
  Country: IT (occurrence: IT)
  Receive Date: 20200312
  Receipt Date: 20200312
  Transmission Date: 20200409
  Serious: Yes (Death, Life-Threatening, Hospitalization, Other)
  Sender: FDA-Public Use
  Company Number: IT-INNOGENIX, LLC-2081549

PATIENT
  Age: 40 Year
  Sex: Male

DRUGS (9)
  1. VALPROATE SODIUM. [Interacting]
     Active Substance: VALPROATE SODIUM
     Route: 048
  2. CLOTHIAPINE [Concomitant]
     Active Substance: CLOTHIAPINE
     Route: 030
  3. HALOPERIDOL. [Suspect]
     Active Substance: HALOPERIDOL
     Indication: AGITATION
     Route: 048
  4. CHLORPHENIRAMINE. [Concomitant]
     Active Substance: CHLORPHENIRAMINE
     Route: 042
  5. MIDAZOLAM HYDROCHLORIDE. [Concomitant]
     Active Substance: MIDAZOLAM HYDROCHLORIDE
     Route: 042
  6. DELORAZEPAM [Concomitant]
     Active Substance: DELORAZEPAM
     Route: 030
  7. CLOZAPINE. [Suspect]
     Active Substance: CLOZAPINE
     Route: 048
  8. CHLORPROMAZINE. [Concomitant]
     Active Substance: CHLORPROMAZINE
     Route: 042
  9. PROMAZINE [Suspect]
     Active Substance: PROMAZINE
     Route: 048

REACTIONS (3)
  - Toxicity to various agents [Unknown]
  - Cardiac arrest [Fatal]
  - Drug interaction [Unknown]
